FAERS Safety Report 12431137 (Version 1)
Quarter: 2016Q2

REPORT INFORMATION
  Report Type: Spontaneous
  Country: CA (occurrence: CA)
  Receive Date: 20160603
  Receipt Date: 20160603
  Transmission Date: 20160815
  Serious: No
  Sender: FDA-Public Use
  Company Number: CA-JAZZ-2015-CA-018000

PATIENT
  Age: 10 Year
  Sex: Female

DRUGS (41)
  1. XYREM [Suspect]
     Active Substance: SODIUM OXYBATE
     Dosage: 2 G, TID
     Route: 048
     Dates: start: 20140903, end: 201410
  2. XYREM [Suspect]
     Active Substance: SODIUM OXYBATE
     Dosage: 2.25 G FIRST DOSE
     Route: 048
     Dates: start: 201501
  3. XYREM [Suspect]
     Active Substance: SODIUM OXYBATE
     Dosage: 2 G, SECOND DOSE
     Route: 048
     Dates: start: 20141003, end: 2014
  4. XYREM [Suspect]
     Active Substance: SODIUM OXYBATE
     Dosage: 2 G, THIRD DOSE
     Route: 048
     Dates: start: 20141003, end: 2014
  5. XYREM [Suspect]
     Active Substance: SODIUM OXYBATE
     Dosage: 2.25 G, SECOND DOSE
     Route: 048
     Dates: start: 20141210, end: 201501
  6. XYREM [Suspect]
     Active Substance: SODIUM OXYBATE
     Dosage: DIVIDED IN THREE UNKNOWN DOSES
     Route: 048
     Dates: start: 20150711, end: 201507
  7. XYREM [Suspect]
     Active Substance: SODIUM OXYBATE
     Dosage: 1.75 G, BID
     Route: 048
     Dates: start: 20151125
  8. XYREM [Suspect]
     Active Substance: SODIUM OXYBATE
     Indication: CATAPLEXY
     Dosage: 1 G, BID
     Route: 048
     Dates: start: 20140216, end: 201403
  9. XYREM [Suspect]
     Active Substance: SODIUM OXYBATE
     Dosage: 2.25 G, BID
     Route: 048
     Dates: start: 20140414, end: 201404
  10. XYREM [Suspect]
     Active Substance: SODIUM OXYBATE
     Dosage: 1.5 G, TID
     Route: 048
     Dates: start: 20140530, end: 2014
  11. XYREM [Suspect]
     Active Substance: SODIUM OXYBATE
     Dosage: 2 G, FIRST DOSE
     Route: 048
     Dates: start: 201501, end: 201501
  12. XYREM [Suspect]
     Active Substance: SODIUM OXYBATE
     Dosage: 2.25 G, THIRD DOSE
     Route: 048
     Dates: start: 20150514, end: 201505
  13. XYREM [Suspect]
     Active Substance: SODIUM OXYBATE
     Dosage: 2.5 G, SECOND DOSE
     Route: 048
     Dates: start: 20150524, end: 2015
  14. XYREM [Suspect]
     Active Substance: SODIUM OXYBATE
     Dosage: DIVIDED IN THREE UNKNOWN DOSES
     Route: 048
     Dates: start: 20150824, end: 201509
  15. XYREM [Suspect]
     Active Substance: SODIUM OXYBATE
     Dosage: 2 G, BID
     Route: 048
     Dates: start: 20140421, end: 201404
  16. XYREM [Suspect]
     Active Substance: SODIUM OXYBATE
     Dosage: DIVIDED IN THREE UNKNOWN DOSES
     Route: 048
     Dates: start: 20150726, end: 201508
  17. XYREM [Suspect]
     Active Substance: SODIUM OXYBATE
     Dosage: DIVIDED IN THREE UNKNOWN DOSES
     Route: 048
     Dates: start: 20150915, end: 201510
  18. XYREM [Suspect]
     Active Substance: SODIUM OXYBATE
     Dosage: 2.25 G SECOND DOSE
     Route: 048
     Dates: start: 201501
  19. XYREM [Suspect]
     Active Substance: SODIUM OXYBATE
     Dosage: 1.5 G, BID
     Route: 048
     Dates: start: 20140302, end: 201403
  20. XYREM [Suspect]
     Active Substance: SODIUM OXYBATE
     Dosage: 2.5 G, BID
     Route: 048
     Dates: start: 20140411, end: 201404
  21. XYREM [Suspect]
     Active Substance: SODIUM OXYBATE
     Dosage: 1.75 G, FIRST DOSE
     Route: 048
     Dates: start: 20141003, end: 2014
  22. XYREM [Suspect]
     Active Substance: SODIUM OXYBATE
     Dosage: 2 G, FIRST DOSE
     Route: 048
     Dates: start: 20141210, end: 201501
  23. XYREM [Suspect]
     Active Substance: SODIUM OXYBATE
     Dosage: 2.25 G, SECOND DOSE
     Route: 048
     Dates: start: 201501, end: 2015
  24. XYREM [Suspect]
     Active Substance: SODIUM OXYBATE
     Dosage: 2.5 G, FIRST DOSE
     Route: 048
     Dates: start: 20150514, end: 201505
  25. XYREM [Suspect]
     Active Substance: SODIUM OXYBATE
     Dosage: 2 G, THIRD DOSE
     Route: 048
     Dates: start: 20150524, end: 2015
  26. XYREM [Suspect]
     Active Substance: SODIUM OXYBATE
     Dosage: 2 G THIRD DOSE
     Route: 048
     Dates: start: 201501, end: 2015
  27. XYREM [Suspect]
     Active Substance: SODIUM OXYBATE
     Dosage: 2.125 G, BID
     Route: 048
     Dates: start: 20140416, end: 201404
  28. XYREM [Suspect]
     Active Substance: SODIUM OXYBATE
     Dosage: 2.25 G, SECOND DOSE
     Route: 048
     Dates: start: 201501, end: 201501
  29. XYREM [Suspect]
     Active Substance: SODIUM OXYBATE
     Dosage: 2.25 G, THIRD DOSE
     Route: 048
     Dates: start: 201501, end: 201501
  30. XYREM [Suspect]
     Active Substance: SODIUM OXYBATE
     Dosage: 2 G, THIRD DOSE
     Route: 048
     Dates: start: 201501, end: 2015
  31. RITALIN [Suspect]
     Active Substance: METHYLPHENIDATE HYDROCHLORIDE
     Indication: PRODUCT USED FOR UNKNOWN INDICATION
     Dosage: UNK
  32. XYREM [Suspect]
     Active Substance: SODIUM OXYBATE
     Dosage: 2 G, TID
     Route: 048
     Dates: start: 20141205, end: 201412
  33. XYREM [Suspect]
     Active Substance: SODIUM OXYBATE
     Dosage: 2 G, THIRD DOSE
     Route: 048
     Dates: start: 20141210, end: 201501
  34. XYREM [Suspect]
     Active Substance: SODIUM OXYBATE
     Dosage: 2.25 G, FIRST DOSE
     Route: 048
     Dates: start: 201501, end: 2015
  35. XYREM [Suspect]
     Active Substance: SODIUM OXYBATE
     Dosage: 2.5 G, FIRST DOSE
     Route: 048
     Dates: start: 20150524, end: 2015
  36. XYREM [Suspect]
     Active Substance: SODIUM OXYBATE
     Dosage: DIVIDED IN THREE UNKNOWN DOSES
     Route: 048
     Dates: start: 20150810, end: 201508
  37. EFFEXOR [Concomitant]
     Active Substance: VENLAFAXINE HYDROCHLORIDE
     Indication: PRODUCT USED FOR UNKNOWN INDICATION
     Dosage: UNK
  38. XYREM [Suspect]
     Active Substance: SODIUM OXYBATE
     Dosage: 2 G, BID
     Route: 048
     Dates: start: 20140323, end: 201404
  39. XYREM [Suspect]
     Active Substance: SODIUM OXYBATE
     Dosage: 2.5 G, SECOND DOSE
     Route: 048
     Dates: start: 20150514, end: 201505
  40. XYREM [Suspect]
     Active Substance: SODIUM OXYBATE
     Dosage: DIVIDED IN THREE UNKNOWN DOSES
     Route: 048
     Dates: start: 20151012
  41. XYREM [Suspect]
     Active Substance: SODIUM OXYBATE
     Dosage: 4.5 G, BID
     Route: 048

REACTIONS (3)
  - Anxiety [Recovering/Resolving]
  - Inappropriate schedule of drug administration [Unknown]
  - Drug dispensing error [Unknown]

NARRATIVE: CASE EVENT DATE: 201510
